FAERS Safety Report 5854999-7 (Version None)
Quarter: 2008Q3

REPORT INFORMATION
  Report Type: 
  Country: None (occurrence: None)
  Receive Date: 20080822
  Receipt Date: 20080429
  Transmission Date: 20090109
  Serious: No
  Sender: FDA-Public Use
  Company Number: US-ABBOTT-08P-163-0449477-00

PATIENT
  Sex: Female
  Weight: 68.1 kg

DRUGS (3)
  1. SYNTHROID [Suspect]
     Indication: THYROID FUNCTION TEST ABNORMAL
     Route: 048
     Dates: start: 20080422
  2. SYNTHROID [Suspect]
  3. CETIRIZINE HYDROCHLORIDE [Concomitant]
     Indication: DRUG USE FOR UNKNOWN INDICATION

REACTIONS (6)
  - BODY TEMPERATURE INCREASED [None]
  - HEADACHE [None]
  - HYPERHIDROSIS [None]
  - LIBIDO DECREASED [None]
  - MUSCLE TIGHTNESS [None]
  - THIRST [None]
